FAERS Safety Report 22328517 (Version 1)
Quarter: 2023Q2

REPORT INFORMATION
  Report Type: Spontaneous
  Country: US (occurrence: US)
  Receive Date: 20230517
  Receipt Date: 20230517
  Transmission Date: 20230721
  Serious: No
  Sender: FDA-Public Use
  Company Number: US-RADIUS HEALTH INC.-2022US006142

PATIENT
  Sex: Female

DRUGS (3)
  1. TYMLOS [Suspect]
     Active Substance: ABALOPARATIDE
     Indication: Osteoporotic fracture
     Dosage: 80 MCG, QD
     Route: 058
     Dates: start: 202205
  2. TYMLOS [Suspect]
     Active Substance: ABALOPARATIDE
     Indication: Senile osteoporosis
  3. TYMLOS [Suspect]
     Active Substance: ABALOPARATIDE
     Indication: Spinal fracture

REACTIONS (1)
  - Weight decreased [Unknown]
